FAERS Safety Report 7435960-8 (Version None)
Quarter: 2011Q2

REPORT INFORMATION
  Report Type: 
  Country: None (occurrence: None)
  Receive Date: 20110415
  Receipt Date: 20110401
  Transmission Date: 20111010
  Serious: Yes (Other)
  Sender: FDA-Public Use
  Company Number: TPA2011A01381

PATIENT
  Age: 70 Year
  Sex: Female

DRUGS (9)
  1. LISINOPRIL/HCTZ(HYDROCHLOROTHIAZIDE, LISINOPRIL) [Concomitant]
  2. ACTOS [Suspect]
     Dosage: 45 MG, 1 IN 1 D, PER ORAL
     Route: 048
     Dates: end: 20101227
  3. GLIPIZIDE [Concomitant]
  4. TICLOPIDINE HCL [Concomitant]
  5. SULFASALAZINE [Concomitant]
  6. SIMVASTATIN [Concomitant]
  7. DOXAZOSIN MESYLATE(DOXAZOSIN MESILATE) [Concomitant]
  8. AMLODIPINE BESYLATE [Concomitant]
  9. OMEPRAZOLE [Concomitant]

REACTIONS (3)
  - HIP FRACTURE [None]
  - FALL [None]
  - LEG AMPUTATION [None]
